FAERS Safety Report 6236957-6 (Version None)
Quarter: 2009Q2

REPORT INFORMATION
  Report Type: 
  Country: None (occurrence: None)
  Receive Date: 20090619
  Receipt Date: 20090407
  Transmission Date: 20091009
  Serious: No
  Sender: FDA-Public Use
  Company Number: US-ASTRAZENECA-2009UW05518

PATIENT
  Sex: Male

DRUGS (1)
  1. SYMBICORT [Suspect]
     Indication: RESPIRATORY DISORDER
     Dosage: 2 PUFFS TWICE DAILY
     Route: 055
     Dates: start: 20070101

REACTIONS (3)
  - DYSPHONIA [None]
  - MALAISE [None]
  - THROAT IRRITATION [None]
